FAERS Safety Report 6473668 (Version 11)
Quarter: 2012Q4

REPORT INFORMATION
  Report Type: 
  Country: US (occurrence: US)
  Receive Date: 20071121
  Receipt Date: 20121228
  Transmission Date: 20130627
  Serious: Yes (Hospitalization, Congenital Anomaly, Other)
  Sender: FDA-Public Use
  Company Number: US-PFIZER INC-2007095370

PATIENT
  Sex: Male
  Weight: 4 kg

DRUGS (11)
  1. ZOLOFT [Suspect]
     Indication: DEPRESSION
     Dosage: 100 mg, UNK
     Route: 064
     Dates: start: 20030624
  2. ZOLOFT [Suspect]
     Dosage: 50 mg, UNK
     Route: 064
     Dates: start: 20040714
  3. PRENATAL VITAMINS [Concomitant]
     Dosage: UNK
     Route: 064
     Dates: start: 20040603
  4. ACYCLOVIR [Concomitant]
     Indication: HERPES SIMPLEX
     Dosage: 200 mg, UNK
     Route: 064
     Dates: start: 20041101
  5. PITOCIN [Concomitant]
     Dosage: UNK
     Route: 064
     Dates: start: 20041103, end: 20041105
  6. MISOPROSTOL [Concomitant]
     Dosage: 25 mg, UNK
     Route: 064
     Dates: start: 20041103
  7. MORPHINE [Concomitant]
     Dosage: 10 mg, sufficient quantity
     Route: 064
     Dates: start: 20041103
  8. ZOLPIDEM [Concomitant]
     Dosage: 5 mg, one tablet
     Route: 064
     Dates: start: 20041104
  9. ACETAMINOPHEN [Concomitant]
     Dosage: 325 mg, two tablets
     Route: 064
     Dates: start: 20041104
  10. GENTAMICIN [Concomitant]
     Dosage: 100 mg, UNK
     Route: 064
     Dates: start: 20041104
  11. AXID [Concomitant]
     Indication: GASTROESOPHAGEAL REFLUX DISEASE
     Dosage: UNK
     Route: 064

REACTIONS (10)
  - Foetal exposure during pregnancy [Unknown]
  - Transposition of the great vessels [Unknown]
  - Patent ductus arteriosus [Unknown]
  - Atrial septal defect [Unknown]
  - Atrial septal defect [Unknown]
  - Congenital anomaly [Unknown]
  - Hypoxia [Unknown]
  - Pulmonary artery stenosis [Unknown]
  - Aortic dilatation [Unknown]
  - Cyanosis [Unknown]
